FAERS Safety Report 14838508 (Version 1)
Quarter: 2018Q2

REPORT INFORMATION
  Report Type: Spontaneous
  Country: HU (occurrence: HU)
  Receive Date: 20180502
  Receipt Date: 20180502
  Transmission Date: 20180711
  Serious: Yes (Hospitalization, Other)
  Sender: FDA-Public Use
  Company Number: HU-CELGENEUS-HUN-20171103876

PATIENT
  Age: 59 Year
  Sex: Female

DRUGS (3)
  1. VIDAZA [Suspect]
     Active Substance: AZACITIDINE
     Route: 065
  2. VIDAZA [Suspect]
     Active Substance: AZACITIDINE
     Indication: MYELODYSPLASTIC SYNDROME
     Route: 065
     Dates: start: 201704
  3. VIDAZA [Suspect]
     Active Substance: AZACITIDINE
     Indication: OFF LABEL USE
     Route: 065
     Dates: start: 201705

REACTIONS (9)
  - Acute myeloid leukaemia [Unknown]
  - Diabetes mellitus [Unknown]
  - Skin disorder [Recovered/Resolved]
  - Anaemia [Unknown]
  - Necrotising fasciitis [Unknown]
  - Cor pulmonale [Unknown]
  - Malassezia infection [Recovered/Resolved]
  - Pyrexia [Recovered/Resolved]
  - Periorbital disorder [Unknown]

NARRATIVE: CASE EVENT DATE: 201801
